FAERS Safety Report 19730667 (Version 5)
Quarter: 2021Q4

REPORT INFORMATION
  Report Type: Spontaneous
  Country: HR (occurrence: HR)
  Receive Date: 20210820
  Receipt Date: 20211027
  Transmission Date: 20220303
  Serious: Yes (Hospitalization, Other)
  Sender: FDA-Public Use
  Company Number: None

PATIENT

DRUGS (21)
  1. PROPRANOLOL [Interacting]
     Active Substance: PROPRANOLOL HYDROCHLORIDE
     Indication: Migraine
     Dosage: 20 MG, TID (3/DAY)
     Route: 048
  2. PROPRANOLOL [Interacting]
     Active Substance: PROPRANOLOL HYDROCHLORIDE
     Indication: Off label use
  3. PANTOPRAZOLE [Interacting]
     Active Substance: PANTOPRAZOLE
     Indication: Product used for unknown indication
     Dosage: 40 MG, QD
     Route: 048
  4. FUROSEMIDE [Interacting]
     Active Substance: FUROSEMIDE
     Indication: Nephropathy toxic
     Dosage: 40 MG, QD (1/DAY)
     Route: 048
  5. DICLOFENAC POTASSIUM [Interacting]
     Active Substance: DICLOFENAC POTASSIUM
     Indication: Migraine
     Dosage: 150-200 MG, QD, INCREASED
     Route: 048
     Dates: start: 2018
  6. PREDNISONE [Suspect]
     Active Substance: PREDNISONE
     Indication: Product used for unknown indication
     Dosage: 60 MG, QD
     Route: 048
  7. DICLOFENAC [Interacting]
     Active Substance: DICLOFENAC
     Indication: Migraine
     Dosage: 150-200 MG, QD, INCREASED
     Route: 048
  8. CALCITRIOL [Suspect]
     Active Substance: CALCITRIOL
     Indication: Hypocalcaemia
     Dosage: 0.25 UG EVERY OTHER DAY IN COMBINATION WITH CALCIUM CARBOANATE
     Route: 065
  9. CALCITRIOL [Suspect]
     Active Substance: CALCITRIOL
     Dosage: 0.5 ?G, UNK
     Route: 065
  10. SULFAMETHOXAZOLE AND TRIMETHOPRIM [Interacting]
     Active Substance: SULFAMETHOXAZOLE\TRIMETHOPRIM
     Indication: Urinary tract infection
     Dosage: 1 DF (400/80 MG), BID, TWO 14-DAY COURSES
     Route: 048
  11. CEFTRIAXONE [Interacting]
     Active Substance: CEFTRIAXONE
     Indication: Pneumonia
     Dosage: 1 G, QD
     Route: 042
  12. CEFTRIAXONE [Interacting]
     Active Substance: CEFTRIAXONE
     Indication: Urinary tract infection
  13. ATORVASTATIN [Interacting]
     Active Substance: ATORVASTATIN
     Indication: Dyslipidaemia
     Dosage: 20 MG, QD
     Route: 048
  14. CEFUROXIME [Interacting]
     Active Substance: CEFUROXIME
     Indication: Product used for unknown indication
     Dosage: 1500 MG, QID (4/DAY)
     Route: 048
  15. FENOFIBRATE\SIMVASTATIN [Concomitant]
     Active Substance: FENOFIBRATE\SIMVASTATIN
     Indication: Dyslipidaemia
     Dosage: 1 DF (145/20 MG),
     Route: 065
  16. FENOFIBRATE\SIMVASTATIN [Concomitant]
     Active Substance: FENOFIBRATE\SIMVASTATIN
     Dosage: 1 DF (145/40 MG)
     Route: 065
  17. POTASSIUM CITRATE [Concomitant]
     Active Substance: POTASSIUM CITRATE
     Indication: Supplementation therapy
     Dosage: 2 G, QD (1/DAY)
     Route: 065
  18. POTASSIUM BICARBONATE [Concomitant]
     Active Substance: POTASSIUM BICARBONATE
     Indication: Product used for unknown indication
     Dosage: 2 G, QD
     Route: 065
  19. CALCIUM CARBONATE [Concomitant]
     Active Substance: CALCIUM CARBONATE
     Indication: Hypocalcaemia
     Dosage: 1 G, TID (3 X 1G/DAY)
     Route: 065
  20. METHYLPREDNISOLONE [Concomitant]
     Active Substance: METHYLPREDNISOLONE
     Indication: Nephropathy toxic
     Dosage: UNK
     Route: 048
  21. METHYLPREDNISOLONE [Concomitant]
     Active Substance: METHYLPREDNISOLONE
     Dosage: 250 MG, QD (1/DAY), INITIAL
     Route: 042

REACTIONS (9)
  - Hepatotoxicity [Recovered/Resolved]
  - Nephropathy toxic [Recovered/Resolved]
  - Nephrotic syndrome [Recovered/Resolved]
  - Drug-induced liver injury [Recovered/Resolved]
  - Drug interaction [Unknown]
  - Product use in unapproved indication [Unknown]
  - Off label use [Unknown]
  - Product use issue [Unknown]
  - Inappropriate schedule of product administration [Unknown]

NARRATIVE: CASE EVENT DATE: 20180325
